FAERS Safety Report 7163459-5 (Version None)
Quarter: 2010Q4

REPORT INFORMATION
  Report Type: 
  Country: None (occurrence: None)
  Receive Date: 20101215
  Receipt Date: 20100421
  Transmission Date: 20110411
  Serious: Yes (Other)
  Sender: FDA-Public Use
  Company Number: SE-PFIZER INC-2010050109

PATIENT
  Age: 55 Year
  Sex: Female

DRUGS (4)
  1. LYRICA [Suspect]
     Indication: NEURALGIA
     Dosage: 375 MG DAILY
     Dates: start: 20090122
  2. LACTULOSE [Concomitant]
     Dosage: UNK
  3. OMEPRAZOLE [Concomitant]
     Dosage: UNK
  4. ALVEDON [Concomitant]
     Dosage: UNK

REACTIONS (13)
  - AGEUSIA [None]
  - APHASIA [None]
  - DIZZINESS [None]
  - DYSGEUSIA [None]
  - DYSPEPSIA [None]
  - GAIT DISTURBANCE [None]
  - MUSCLE RUPTURE [None]
  - MUSCULOSKELETAL STIFFNESS [None]
  - OEDEMA PERIPHERAL [None]
  - PAIN [None]
  - SPEECH DISORDER [None]
  - SWELLING FACE [None]
  - SYNCOPE [None]
